FAERS Safety Report 15293736 (Version 1)
Quarter: 2018Q3

REPORT INFORMATION
  Report Type: Spontaneous
  Country: US (occurrence: US)
  Receive Date: 20180807
  Receipt Date: 20180807
  Transmission Date: 20181010
  Serious: No
  Sender: FDA-Public Use
  Company Number: None

PATIENT
  Sex: Female
  Weight: 63.96 kg

DRUGS (1)
  1. VALSARTAN. [Suspect]
     Active Substance: VALSARTAN
     Indication: HYPERTENSION
     Dosage: ?          QUANTITY:30 DF DOSAGE FORM;?
     Route: 048
     Dates: start: 20120809, end: 20180801

REACTIONS (7)
  - Fatigue [None]
  - Dysphagia [None]
  - Tendon pain [None]
  - Cough [None]
  - Chest discomfort [None]
  - Wheezing [None]
  - Diarrhoea [None]
